FAERS Safety Report 13409780 (Version 4)
Quarter: 2017Q2

REPORT INFORMATION
  Report Type: Report from Study
  Country: US (occurrence: US)
  Receive Date: 20170406
  Receipt Date: 20170629
  Transmission Date: 20170830
  Serious: Yes (Other)
  Sender: FDA-Public Use
  Company Number: US-AMGEN-USASL2017050086

PATIENT
  Age: 33 Year
  Sex: Female
  Weight: 57.6 kg

DRUGS (10)
  1. ENBREL [Suspect]
     Active Substance: ETANERCEPT
     Indication: PSORIATIC ARTHROPATHY
     Dosage: 50 MG, QWK
     Route: 065
     Dates: start: 201703
  2. CICLOPIROX. [Concomitant]
     Active Substance: CICLOPIROX
     Dosage: UNK
     Route: 061
  3. FLUVIRIN NOS [Concomitant]
     Active Substance: INFLUENZA VIRUS VACCINE
     Dosage: 15 MUG, TID
     Route: 030
  4. FOLIC ACID. [Concomitant]
     Active Substance: FOLIC ACID
     Dosage: 1 MG, UNK
  5. NACL [Concomitant]
     Active Substance: SODIUM CHLORIDE
     Route: 042
  6. ENBREL [Suspect]
     Active Substance: ETANERCEPT
     Dosage: 50 MG, QWK
     Route: 065
     Dates: end: 20170310
  7. ENBREL [Suspect]
     Active Substance: ETANERCEPT
     Dosage: 50 MG, UNK
     Route: 058
     Dates: start: 20170531
  8. ALEVE [Concomitant]
     Active Substance: NAPROXEN SODIUM
     Dosage: 220 MG, AS NECESSARY
     Route: 048
  9. GADAVIST [Concomitant]
     Active Substance: GADOBUTROL
     Dosage: 5 ML, UNK
     Route: 042
  10. METHOTREXATE SODIUM. [Concomitant]
     Active Substance: METHOTREXATE SODIUM
     Dosage: 2.5 MG, UNK

REACTIONS (25)
  - Seizure [Unknown]
  - Muscle twitching [Unknown]
  - Emotional distress [Unknown]
  - Asthenia [Unknown]
  - Aphasia [Recovering/Resolving]
  - Paraesthesia [Unknown]
  - Hypoaesthesia [Unknown]
  - Fatigue [Unknown]
  - Dyskinesia [Unknown]
  - Muscular weakness [Recovered/Resolved]
  - Diarrhoea [Unknown]
  - Injection site pain [Unknown]
  - Back pain [Unknown]
  - Gait disturbance [Recovering/Resolving]
  - Psoriasis [Unknown]
  - Arthralgia [Unknown]
  - Vomiting [Unknown]
  - Dysphemia [Not Recovered/Not Resolved]
  - Fall [Unknown]
  - Headache [Recovered/Resolved]
  - Dizziness [Unknown]
  - Tremor [Unknown]
  - Myalgia [Unknown]
  - Chest discomfort [Unknown]
  - Stress [Unknown]

NARRATIVE: CASE EVENT DATE: 2017
